FAERS Safety Report 6313168-7 (Version None)
Quarter: 2009Q3

REPORT INFORMATION
  Report Type: 
  Country: None (occurrence: None)
  Receive Date: 20090818
  Receipt Date: 20090810
  Transmission Date: 20100115
  Serious: Yes (Hospitalization, Other)
  Sender: FDA-Public Use
  Company Number: PHHY2009SE34103

PATIENT

DRUGS (2)
  1. DICLOFENAC [Suspect]
  2. ANAESTHETICS [Concomitant]

REACTIONS (1)
  - CATHETER RELATED COMPLICATION [None]
